FAERS Safety Report 12560976 (Version 1)
Quarter: 2016Q3

REPORT INFORMATION
  Report Type: Report from Study
  Country: PE (occurrence: PE)
  Receive Date: 20160715
  Receipt Date: 20160715
  Transmission Date: 20161109
  Serious: Yes (Other)
  Sender: FDA-Public Use
  Company Number: PE-009507513-1607PER006042

PATIENT
  Age: 14 Year
  Sex: Female

DRUGS (1)
  1. NASONEX [Suspect]
     Active Substance: MOMETASONE FUROATE
     Dosage: 1 PUFF IN EACH NOSTRIL, QD, 100 MICROGRAM  DAILY
     Route: 045
     Dates: start: 201604, end: 201606

REACTIONS (3)
  - Dengue fever [Recovering/Resolving]
  - Inappropriate schedule of drug administration [Unknown]
  - Influenza [Recovering/Resolving]

NARRATIVE: CASE EVENT DATE: 2016
